FAERS Safety Report 6956829-9 (Version None)
Quarter: 2010Q3

REPORT INFORMATION
  Report Type: 
  Country: None (occurrence: None)
  Receive Date: 20100826
  Receipt Date: 20100810
  Transmission Date: 20110219
  Serious: No
  Sender: FDA-Public Use
  Company Number: THQ2010A01567

PATIENT
  Age: 55 Year
  Sex: Male

DRUGS (2)
  1. PIOGLITAZONE HCL [Suspect]
     Indication: TYPE 2 DIABETES MELLITUS
     Dosage: PER ORAL
     Route: 048
     Dates: start: 20090513
  2. H80-MC-GWCH PH III LAR MONO (EXENATIDE LONG ACTING RELEASE 2 MG) (ANTI [Suspect]
     Dosage: 2 MCG (2 MCG, 1 IN 1 WEEK), INJECTION
     Dates: start: 20090512

REACTIONS (13)
  - ANAEMIA [None]
  - EROSIVE OESOPHAGITIS [None]
  - GASTRITIS EROSIVE [None]
  - HEPATOMEGALY [None]
  - HIV INFECTION [None]
  - HYPERGAMMAGLOBULINAEMIA [None]
  - HYPOALBUMINAEMIA [None]
  - LYMPHOPLASMACYTOID LYMPHOMA/IMMUNOCYTOMA [None]
  - MONOCLONAL GAMMOPATHY [None]
  - MULTIPLE MYELOMA [None]
  - NON-HODGKIN'S LYMPHOMA [None]
  - PLASMABLASTIC LYMPHOMA [None]
  - WEIGHT DECREASED [None]
